FAERS Safety Report 4547403-2 (Version None)
Quarter: 2005Q1

REPORT INFORMATION
  Report Type: 
  Country: None (occurrence: None)
  Receive Date: 20050107
  Receipt Date: 20041227
  Transmission Date: 20050727
  Serious: Yes (Hospitalization)
  Sender: FDA-Public Use
  Company Number: US-ROCHE-390787

PATIENT
  Sex: Male

DRUGS (14)
  1. MYCOPHENOLATE MOFETIL [Suspect]
     Route: 048
     Dates: end: 20041226
  2. MYCOPHENOLATE MOFETIL [Suspect]
     Route: 048
     Dates: start: 20041226
  3. METHYLPREDNISOLONE [Suspect]
     Route: 042
  4. TACROLIMUS [Suspect]
     Route: 065
  5. TACROLIMUS [Suspect]
     Dosage: DOSAGE LOWERED.
     Route: 065
     Dates: end: 20041225
  6. TACROLIMUS [Suspect]
     Route: 065
     Dates: start: 20041227
  7. PROTONIX [Concomitant]
  8. REGLAN [Concomitant]
  9. ACYCLOVIR [Concomitant]
  10. CIPROFLOXACIN [Concomitant]
  11. LOPRESSOR [Concomitant]
  12. K-PHOS NEUTRAL [Concomitant]
  13. NORVASC [Concomitant]
  14. DAPSONE [Concomitant]
     Dosage: Q M-W-F

REACTIONS (5)
  - ABDOMINAL PAIN LOWER [None]
  - DRUG TOXICITY [None]
  - NAUSEA [None]
  - PYREXIA [None]
  - URINARY TRACT DISORDER [None]
